FAERS Safety Report 12430096 (Version 1)
Quarter: 2016Q2

REPORT INFORMATION
  Report Type: Spontaneous
  Country: IT (occurrence: IT)
  Receive Date: 20160602
  Receipt Date: 20160602
  Transmission Date: 20160815
  Serious: Yes (Other)
  Sender: FDA-Public Use
  Company Number: IT-ABBVIE-16P-083-1642913-00

PATIENT
  Age: 58 Year
  Sex: Male
  Weight: 95 kg

DRUGS (8)
  1. RIXIL [Concomitant]
     Indication: PRODUCT USED FOR UNKNOWN INDICATION
  2. PROCORALAN [Concomitant]
     Active Substance: IVABRADINE
     Indication: PRODUCT USED FOR UNKNOWN INDICATION
  3. GLUCOPHAGE [Concomitant]
     Active Substance: METFORMIN HYDROCHLORIDE
     Indication: PRODUCT USED FOR UNKNOWN INDICATION
  4. FULCRO [Suspect]
     Active Substance: FENOFIBRATE
     Indication: TYPE IIA HYPERLIPIDAEMIA
     Route: 048
     Dates: start: 20160520, end: 20160520
  5. LANSOPRAZOLE RATIOPHARM [Concomitant]
     Indication: PRODUCT USED FOR UNKNOWN INDICATION
  6. CARDIOASPIRIN [Concomitant]
     Active Substance: ASPIRIN
     Indication: PRODUCT USED FOR UNKNOWN INDICATION
  7. CONGESCOR [Concomitant]
     Active Substance: BISOPROLOL
     Indication: PRODUCT USED FOR UNKNOWN INDICATION
  8. ESKIM [Concomitant]
     Active Substance: OMEGA-3 FATTY ACIDS
     Indication: PRODUCT USED FOR UNKNOWN INDICATION

REACTIONS (3)
  - Muscle twitching [Recovered/Resolved]
  - Myalgia [Recovered/Resolved]
  - Paraesthesia oral [Recovered/Resolved]

NARRATIVE: CASE EVENT DATE: 20160520
